FAERS Safety Report 26153070 (Version 1)
Quarter: 2025Q4

REPORT INFORMATION
  Report Type: Spontaneous
  Country: US (occurrence: US)
  Receive Date: 20251214
  Receipt Date: 20251214
  Transmission Date: 20260118
  Serious: Yes (Other)
  Sender: SANOFI AVENTIS
  Company Number: US-SA-2025SA369620

PATIENT
  Sex: Female

DRUGS (1)
  1. DUPIXENT [Suspect]
     Active Substance: DUPILUMAB
     Indication: Chronic rhinosinusitis with nasal polyps
     Dosage: 300 MG, QOW
     Dates: start: 2019

REACTIONS (3)
  - Coarctation of the aorta [Recovered/Resolved]
  - Maternal exposure during pregnancy [Unknown]
  - Kabuki make-up syndrome [Unknown]

NARRATIVE: CASE EVENT DATE: 20240101
